FAERS Safety Report 4548684-1 (Version None)
Quarter: 2004Q4

REPORT INFORMATION
  Report Type: 
  Country: None (occurrence: None)
  Receive Date: 20041227
  Receipt Date: 20040930
  Transmission Date: 20050328
  Serious: No
  Sender: FDA-Public Use
  Company Number: 04P-163-0275540-00

PATIENT
  Age: 57 Year
  Sex: Female
  Weight: 79.3795 kg

DRUGS (11)
  1. HUMIRA [Suspect]
     Indication: RHEUMATOID ARTHRITIS
     Dosage: 40 MG, 1 IN 2 WK, SUBCUTANEOUS
     Route: 058
     Dates: start: 20040701
  2. SINGULAIR [Concomitant]
  3. ADVAIR DISKUS 100/50 [Concomitant]
  4. METHOTREXATE [Concomitant]
  5. HYDROXYCHLOROQUINE PHOSPHATE [Concomitant]
  6. ZOCOR [Concomitant]
  7. FOLIC ACID [Concomitant]
  8. ESOMEPRAZOLE [Concomitant]
  9. BUCINDOLOL HYDROCHLORIDE [Concomitant]
  10. ALBUTEROL [Concomitant]
  11. PREDNISONE [Concomitant]

REACTIONS (1)
  - RASH PAPULAR [None]
